FAERS Safety Report 5277276-4 (Version None)
Quarter: 2007Q1

REPORT INFORMATION
  Report Type: 
  Country: None (occurrence: None)
  Receive Date: 20070327
  Receipt Date: 20070322
  Transmission Date: 20070707
  Serious: Yes (Other)
  Sender: FDA-Public Use
  Company Number: JP-GLAXOSMITHKLINE-B0463005A

PATIENT
  Age: 13 Year
  Sex: Male
  Weight: 37 kg

DRUGS (5)
  1. RELENZA [Suspect]
     Indication: INFLUENZA
     Route: 055
     Dates: start: 20070224, end: 20070226
  2. MEIACT [Concomitant]
     Indication: INFLUENZA
     Route: 048
     Dates: start: 20070224, end: 20070226
  3. MUCOSTA [Concomitant]
     Indication: INFLUENZA
     Route: 048
     Dates: start: 20070224, end: 20070226
  4. ALLEGRA [Concomitant]
     Route: 048
     Dates: start: 20070224, end: 20070226
  5. CALONAL [Concomitant]
     Indication: INFLUENZA
     Route: 048

REACTIONS (1)
  - HALLUCINATION [None]
